FAERS Safety Report 12691250 (Version 1)
Quarter: 2016Q3

REPORT INFORMATION
  Report Type: Spontaneous
  Country: DK (occurrence: DK)
  Receive Date: 20160826
  Receipt Date: 20160826
  Transmission Date: 20161109
  Serious: Yes (Hospitalization)
  Sender: FDA-Public Use
  Company Number: DK-MYLANLABS-2016M1034783

PATIENT

DRUGS (1)
  1. NAPROXEN-E MYLAN [Suspect]
     Active Substance: NAPROXEN
     Indication: PAIN
     Dosage: UNK
     Dates: start: 2008, end: 20150603

REACTIONS (5)
  - Coronary artery bypass [Recovered/Resolved]
  - Angina pectoris [Unknown]
  - Depression [Unknown]
  - Coronary artery stenosis [Recovered/Resolved]
  - Myocardial infarction [None]

NARRATIVE: CASE EVENT DATE: 2015
